FAERS Safety Report 10034264 (Version 1)
Quarter: 2014Q1

REPORT INFORMATION
  Report Type: Spontaneous
  Country: US (occurrence: None)
  Receive Date: 20140324
  Receipt Date: 20140324
  Transmission Date: 20141002
  Serious: Yes (Hospitalization)
  Sender: FDA-Public Use
  Company Number: None

PATIENT
  Age: 75 Year
  Sex: Female

DRUGS (3)
  1. AFINITOR [Suspect]
     Route: 048
     Dates: start: 20130419
  2. ASPIRIN [Concomitant]
  3. CIPRO [Concomitant]

REACTIONS (1)
  - Hepatic embolisation [None]
